FAERS Safety Report 19628590 (Version 1)
Quarter: 2021Q3

REPORT INFORMATION
  Report Type: Spontaneous
  Country: US (occurrence: US)
  Receive Date: 20210729
  Receipt Date: 20210729
  Transmission Date: 20211014
  Serious: No
  Sender: FDA-Public Use
  Company Number: None

PATIENT
  Sex: Female

DRUGS (3)
  1. DEXAMETHASON [Concomitant]
     Active Substance: DEXAMETHASONE
  2. POMAYLST [Concomitant]
  3. NINLARO [Suspect]
     Active Substance: IXAZOMIB CITRATE
     Indication: PLASMA CELL MYELOMA
     Dosage: ?          OTHER FREQUENCY:WEEKLY 3WK OFF 1WK;?
     Route: 048
     Dates: start: 20210610

REACTIONS (2)
  - Contusion [None]
  - Dehydration [None]
